FAERS Safety Report 15506384 (Version 1)
Quarter: 2018Q4

REPORT INFORMATION
  Report Type: Spontaneous
  Country: US (occurrence: US)
  Receive Date: 20181016
  Receipt Date: 20181016
  Transmission Date: 20190205
  Serious: Yes (Hospitalization)
  Sender: FDA-Public Use
  Company Number: US-ROCHE-2200723

PATIENT
  Sex: Female

DRUGS (6)
  1. AMLODIPINE BESYLATE. [Concomitant]
     Active Substance: AMLODIPINE BESYLATE
     Dosage: ONGOING: UNK
     Route: 065
  2. ATORVASTATIN CALCIUM. [Concomitant]
     Active Substance: ATORVASTATIN CALCIUM
     Dosage: ONGOING: UNK
     Route: 065
  3. CARAFATE [Concomitant]
     Active Substance: SUCRALFATE
     Dosage: ONGOING: UNK
     Route: 065
  4. ESBRIET [Suspect]
     Active Substance: PIRFENIDONE
     Indication: IDIOPATHIC PULMONARY FIBROSIS
     Route: 048
     Dates: start: 20161013
  5. COUMADIN [Concomitant]
     Active Substance: WARFARIN SODIUM
     Route: 065
  6. CARVEDILOL. [Concomitant]
     Active Substance: CARVEDILOL
     Dosage: ONGOING: UNK
     Route: 065

REACTIONS (1)
  - Sepsis [Unknown]
